FAERS Safety Report 8976127 (Version 2)
Quarter: 2013Q1

REPORT INFORMATION
  Report Type: Report from Study
  Country: RU (occurrence: RU)
  Receive Date: 20121219
  Receipt Date: 20130103
  Transmission Date: 20140127
  Serious: Yes (Other)
  Sender: FDA-Public Use
  Company Number: RU-VERTEX PHARMACEUTICALS INC.-2012-026432

PATIENT
  Age: 2 Year
  Sex: 0

DRUGS (3)
  1. VX-950 (TELAPREVIR) [Suspect]
     Indication: HEPATITIS C
     Dosage: 750 MG, TID
     Dates: start: 20121004
  2. RIBAVIRIN [Suspect]
     Indication: HEPATITIS C
     Dosage: 200 MG, 6 TIMES A DAY
     Route: 048
     Dates: start: 20121004
  3. PEGINTERFERON ALFA-2A [Suspect]
     Indication: HEPATITIS C
     Dosage: 180 MG, QW
     Route: 050
     Dates: start: 20121004

REACTIONS (1)
  - Accidental exposure to product by child [Recovered/Resolved]
